FAERS Safety Report 19950062 (Version 1)
Quarter: 2021Q4

REPORT INFORMATION
  Report Type: Spontaneous
  Country: CH (occurrence: CH)
  Receive Date: 20211013
  Receipt Date: 20211013
  Transmission Date: 20220303
  Serious: Yes (Other)
  Sender: FDA-Public Use
  Company Number: 2021A767330

PATIENT
  Sex: Female

DRUGS (1)
  1. LYNPARZA [Suspect]
     Active Substance: OLAPARIB
     Indication: Ovarian cancer
     Dosage: 4 TABLETS OF 150MG DAILY
     Route: 048
     Dates: start: 202102

REACTIONS (2)
  - Malignant neoplasm progression [Unknown]
  - Anaemia [Unknown]
